FAERS Safety Report 10244887 (Version 1)
Quarter: 2014Q2

REPORT INFORMATION
  Report Type: Spontaneous
  Country: FR (occurrence: FR)
  Receive Date: 20140618
  Receipt Date: 20140618
  Transmission Date: 20141212
  Serious: Yes (Hospitalization)
  Sender: FDA-Public Use
  Company Number: FR-PERRIGO-14FR005937

PATIENT
  Age: 43 Year
  Sex: Female

DRUGS (3)
  1. ACETAMINOPHEN 650MG ER 544 [Suspect]
     Indication: INTENTIONAL OVERDOSE
     Dosage: UNK, UNK
     Route: 048
  2. PROPANOLOL                         /00030001/ [Suspect]
     Indication: INTENTIONAL OVERDOSE
     Dosage: UNK, UNK
     Route: 048
  3. ALCOHOL [Suspect]
     Indication: INTENTIONAL OVERDOSE
     Dosage: UNK, UNK
     Route: 048

REACTIONS (8)
  - Overdose [Recovered/Resolved]
  - Drug-induced liver injury [Recovering/Resolving]
  - Hepatic failure [Recovering/Resolving]
  - Respiratory distress [Recovered/Resolved]
  - Hypotension [Recovered/Resolved]
  - Bradycardia [Recovered/Resolved]
  - Confusional state [Recovered/Resolved]
  - Somnolence [Recovered/Resolved]
